FAERS Safety Report 5492839-9 (Version None)
Quarter: 2007Q4

REPORT INFORMATION
  Report Type: 
  Country: None (occurrence: None)
  Receive Date: 20071023
  Receipt Date: 20060911
  Transmission Date: 20080405
  Serious: No
  Sender: FDA-Public Use
  Company Number: US-BRISTOL-MYERS SQUIBB COMPANY-13504741

PATIENT
  Age: 40 Year
  Sex: Female
  Weight: 79 kg

DRUGS (6)
  1. BUSPAR [Suspect]
  2. IBUPROFEN [Concomitant]
  3. WELLBUTRIN [Concomitant]
     Dates: start: 20060701
  4. SOMA [Concomitant]
  5. LOVASTATIN [Concomitant]
     Dates: start: 20040601, end: 20060701
  6. ZOLOFT [Concomitant]
     Dates: end: 20060701

REACTIONS (1)
  - DIZZINESS [None]
